FAERS Safety Report 6988154-4 (Version None)
Quarter: 2010Q3

REPORT INFORMATION
  Report Type: 
  Country: None (occurrence: None)
  Receive Date: 20100916
  Receipt Date: 20100906
  Transmission Date: 20110219
  Serious: Yes (Other)
  Sender: FDA-Public Use
  Company Number: PHHY2009AU28428

PATIENT
  Sex: Female

DRUGS (5)
  1. GLEEVEC [Suspect]
     Indication: CHRONIC MYELOID LEUKAEMIA
     Dosage: 400 MG/DAY
     Route: 048
     Dates: start: 20090501
  2. GLEEVEC [Suspect]
     Dosage: 200 MG DAILY
  3. GLEEVEC [Suspect]
     Dosage: 400 MG DAILY
  4. GLEEVEC [Suspect]
     Dosage: 200 MG, DAILY
     Route: 048
     Dates: start: 20100201
  5. LASIX [Concomitant]
     Indication: OEDEMA
     Dosage: 20 MG DAILY
     Route: 048
     Dates: start: 20090713

REACTIONS (14)
  - COUGH [None]
  - DECREASED APPETITE [None]
  - DIARRHOEA [None]
  - EMOTIONAL DISTRESS [None]
  - FATIGUE [None]
  - FEELING ABNORMAL [None]
  - FLUID RETENTION [None]
  - LACRIMATION INCREASED [None]
  - MUSCULOSKELETAL CHEST PAIN [None]
  - NAUSEA [None]
  - OSTEOPOROSIS [None]
  - RASH [None]
  - SWELLING FACE [None]
  - VOMITING [None]
